FAERS Safety Report 8957269 (Version 2)
Quarter: 2013Q1

REPORT INFORMATION
  Report Type: Spontaneous
  Country: US (occurrence: None)
  Receive Date: 20121128
  Receipt Date: 20130122
  Transmission Date: 20140127
  Serious: No
  Sender: FDA-Public Use
  Company Number: NXG-12-004

PATIENT
  Sex: Male

DRUGS (1)
  1. UNSPECIFIED INGREDIENT [Suspect]
     Indication: VITAMIN SUPPLEMENTATION

REACTIONS (3)
  - Diarrhoea [None]
  - Vomiting [None]
  - Nausea [None]
